FAERS Safety Report 6212645-7 (Version None)
Quarter: 2009Q2

REPORT INFORMATION
  Report Type: 
  Country: None (occurrence: None)
  Receive Date: 20090601
  Receipt Date: 20090601
  Transmission Date: 20091009
  Serious: Yes (Other)
  Sender: FDA-Public Use
  Company Number: None

PATIENT
  Sex: Male
  Weight: 52.6173 kg

DRUGS (2)
  1. DIVALPROEX SODIUM [Suspect]
     Indication: AFFECTIVE DISORDER
     Dosage: 2 PO AM 2 PO AFTER DINNER
     Dates: start: 20090523, end: 20090526
  2. DIVALPROEX SODIUM [Suspect]
     Indication: OPPOSITIONAL DEFIANT DISORDER
     Dosage: 2 PO AM 2 PO AFTER DINNER
     Dates: start: 20090523, end: 20090526

REACTIONS (4)
  - CONDITION AGGRAVATED [None]
  - DRUG INEFFECTIVE [None]
  - OPPOSITIONAL DEFIANT DISORDER [None]
  - PRODUCT SUBSTITUTION ISSUE [None]
